FAERS Safety Report 7082790-5 (Version None)
Quarter: 2010Q4

REPORT INFORMATION
  Report Type: 
  Country: None (occurrence: None)
  Receive Date: 20101104
  Receipt Date: 20101102
  Transmission Date: 20110411
  Serious: Yes (Hospitalization, Other)
  Sender: FDA-Public Use
  Company Number: US-MYLANLABS-2010S1015186

PATIENT
  Age: 20 Year
  Sex: Female
  Weight: 39.01 kg

DRUGS (2)
  1. HYDROXYCHLOROQUINE SULFATE [Suspect]
     Indication: SYSTEMIC LUPUS ERYTHEMATOSUS
     Route: 048
     Dates: start: 20090203, end: 20090804
  2. PREDNISONE [Concomitant]
     Indication: ARTHRALGIA
     Dates: start: 20090226, end: 20090807

REACTIONS (4)
  - BLINDNESS [None]
  - COLOUR BLINDNESS [None]
  - HYPOAESTHESIA [None]
  - VISION BLURRED [None]
